FAERS Safety Report 4898379-X (Version None)
Quarter: 2006Q1

REPORT INFORMATION
  Report Type: 
  Country: None (occurrence: None)
  Receive Date: 20060131
  Receipt Date: 20060131
  Transmission Date: 20060701
  Serious: Yes (Hospitalization)
  Sender: FDA-Public Use
  Company Number: None

PATIENT
  Age: 49 Year
  Sex: Male

DRUGS (6)
  1. ASPIRIN [Suspect]
     Indication: HEADACHE
     Dosage: 1 PACKET 1-3X PER WEEK PO CHRONIC
     Route: 048
  2. PREDNISONE [Suspect]
     Indication: MYASTHENIA GRAVIS
     Dosage: 90 MG EVERY OTHER DAY PO
     Route: 048
  3. CELLCEPT [Concomitant]
  4. PYRIDOSTIGMINE BROMIDE [Concomitant]
  5. ALENDIONDE [Concomitant]
  6. SIMVASTATIN [Concomitant]

REACTIONS (3)
  - ABDOMINAL PAIN [None]
  - GASTRITIS [None]
  - HAEMORRHAGE [None]
